FAERS Safety Report 24562860 (Version 1)
Quarter: 2024Q4

REPORT INFORMATION
  Report Type: Spontaneous
  Country: IN (occurrence: IN)
  Receive Date: 20241029
  Receipt Date: 20241029
  Transmission Date: 20250114
  Serious: Yes (Other)
  Sender: ACCORD
  Company Number: IN-MLMSERVICE-20241015-PI227707-00108-4

PATIENT
  Age: 23 Year
  Sex: Male

DRUGS (3)
  1. ARIPIPRAZOLE [Suspect]
     Active Substance: ARIPIPRAZOLE
     Indication: Obsessive-compulsive symptom
  2. CLOZAPINE [Suspect]
     Active Substance: CLOZAPINE
     Indication: Drug dependence
  3. FLUVOXAMINE [Suspect]
     Active Substance: FLUVOXAMINE
     Indication: Obsessive-compulsive symptom

REACTIONS (6)
  - Dizziness [Recovered/Resolved]
  - Fall [Unknown]
  - Ankle fracture [Unknown]
  - Tremor [Recovered/Resolved]
  - Muscle rigidity [Recovered/Resolved]
  - Extrapyramidal disorder [Recovered/Resolved]
